FAERS Safety Report 16029780 (Version 1)
Quarter: 2019Q1

REPORT INFORMATION
  Report Type: Spontaneous
  Country: CN (occurrence: CN)
  Receive Date: 20190304
  Receipt Date: 20190304
  Transmission Date: 20190418
  Serious: Yes (Other)
  Sender: FDA-Public Use
  Company Number: CN-MYLANLABS-2019M1019434

PATIENT
  Age: 71 Year
  Sex: Male
  Weight: 65 kg

DRUGS (8)
  1. FONDAPARINUX [Suspect]
     Active Substance: FONDAPARINUX
     Indication: ARTERIOSCLEROSIS
     Dosage: 1 DOSAGE FORM, QD
     Route: 058
     Dates: start: 20180713, end: 20180717
  2. BRILINTA [Suspect]
     Active Substance: TICAGRELOR
     Dosage: 90 MILLIGRAM, QD
     Route: 048
     Dates: start: 20180714, end: 20180717
  3. SELBEX [Concomitant]
     Active Substance: TEPRENONE
     Indication: PRODUCT USED FOR UNKNOWN INDICATION
     Dosage: UNK
     Dates: start: 20180713, end: 20180717
  4. ASPIRIN                            /00002701/ [Suspect]
     Active Substance: ASPIRIN
     Indication: ARTERIOSCLEROSIS
     Dosage: 100 MILLIGRAM, QD
     Route: 048
     Dates: start: 20180714, end: 20180717
  5. TIROFIBAN HCL [Suspect]
     Active Substance: TIROFIBAN HYDROCHLORIDE
     Indication: ARTERIOSCLEROSIS
     Dosage: 8 MILLILITER, QD
     Route: 013
     Dates: start: 20180713, end: 20180717
  6. LANSOPRAZOLE. [Concomitant]
     Active Substance: LANSOPRAZOLE
     Indication: PRODUCT USED FOR UNKNOWN INDICATION
     Dosage: UNK
     Dates: start: 20170713, end: 20170718
  7. ASPIRIN                            /00002701/ [Suspect]
     Active Substance: ASPIRIN
     Indication: PREOPERATIVE CARE
     Dosage: 300 MILLIGRAM, QD
     Route: 048
     Dates: start: 20180713, end: 20180713
  8. BRILINTA [Suspect]
     Active Substance: TICAGRELOR
     Indication: PREOPERATIVE CARE
     Dosage: 180 MILLIGRAM, QD
     Route: 048
     Dates: start: 20180713, end: 20180713

REACTIONS (5)
  - Blood pressure decreased [Recovered/Resolved]
  - Haematemesis [Unknown]
  - Dyschezia [Recovered/Resolved]
  - Faeces discoloured [Recovered/Resolved]
  - Upper gastrointestinal haemorrhage [Unknown]

NARRATIVE: CASE EVENT DATE: 20180714
